FAERS Safety Report 6881460-3 (Version None)
Quarter: 2010Q3

REPORT INFORMATION
  Report Type: 
  Country: None (occurrence: None)
  Receive Date: 20100728
  Receipt Date: 20100728
  Transmission Date: 20110219
  Serious: Yes (Life-Threatening, Hospitalization)
  Sender: FDA-Public Use
  Company Number: None

PATIENT
  Age: 51 Year
  Sex: Female
  Weight: 85.9 kg

DRUGS (1)
  1. LORAZEPAM [Suspect]
     Indication: ANXIETY
     Dosage: 1 MG ONCE PO
     Route: 048
     Dates: start: 20100704

REACTIONS (4)
  - COORDINATION ABNORMAL [None]
  - LETHARGY [None]
  - SEDATION [None]
  - TACHYCARDIA [None]
